FAERS Safety Report 9867064 (Version 2)
Quarter: 2014Q1

REPORT INFORMATION
  Report Type: Report from Study
  Country: CA (occurrence: CA)
  Receive Date: 20140204
  Receipt Date: 20140204
  Transmission Date: 20141002
  Serious: Yes (Death, Life-Threatening)
  Sender: FDA-Public Use
  Company Number: CA-ROCHE-1311622

PATIENT
  Age: 33 Year
  Sex: Male
  Weight: 61 kg

DRUGS (5)
  1. AVASTIN [Suspect]
     Indication: BRAIN NEOPLASM MALIGNANT
     Route: 042
     Dates: start: 20130906, end: 20131212
  2. AVASTIN [Suspect]
     Indication: GLIOBLASTOMA MULTIFORME
  3. DILANTIN [Concomitant]
  4. LEVETIRACETAM [Concomitant]
  5. LACTULOSE [Concomitant]

REACTIONS (3)
  - Death [Fatal]
  - Cerebral haemorrhage [Not Recovered/Not Resolved]
  - Abdominal pain [Recovered/Resolved]
